FAERS Safety Report 8314642-4 (Version None)
Quarter: 2012Q2

REPORT INFORMATION
  Report Type: 
  Country: None (occurrence: None)
  Receive Date: 20120426
  Receipt Date: 20120418
  Transmission Date: 20120825
  Serious: Yes (Other)
  Sender: FDA-Public Use
  Company Number: US-CELGENEUS-163-21880-12042330

PATIENT
  Sex: Male

DRUGS (1)
  1. REVLIMID [Suspect]
     Indication: MULTIPLE MYELOMA
     Dosage: 10 MILLIGRAM
     Route: 048
     Dates: start: 20120107

REACTIONS (7)
  - INTESTINAL PERFORATION [None]
  - CONSTIPATION [None]
  - CONTUSION [None]
  - ABDOMINAL PAIN UPPER [None]
  - TREMOR [None]
  - OSTEONECROSIS OF JAW [None]
  - TOOTH DISORDER [None]
